FAERS Safety Report 7559254-5 (Version None)
Quarter: 2011Q2

REPORT INFORMATION
  Report Type: 
  Country: None (occurrence: None)
  Receive Date: 20110621
  Receipt Date: 20110613
  Transmission Date: 20111010
  Serious: Yes (Hospitalization)
  Sender: FDA-Public Use
  Company Number: US-US-EMD SERONO, INC.-233156J10USA

PATIENT
  Sex: Male

DRUGS (1)
  1. REBIF [Suspect]
     Indication: MULTIPLE SCLEROSIS
     Route: 058
     Dates: start: 20100105

REACTIONS (10)
  - FEELING ABNORMAL [None]
  - TREMOR [None]
  - MUSCULOSKELETAL STIFFNESS [None]
  - GAIT DISTURBANCE [None]
  - ASTHENIA [None]
  - HEADACHE [None]
  - DEPRESSED MOOD [None]
  - INJECTION SITE PAIN [None]
  - CENTRAL NERVOUS SYSTEM LESION [None]
  - SALIVARY HYPERSECRETION [None]
